FAERS Safety Report 19147533 (Version 3)
Quarter: 2021Q2

REPORT INFORMATION
  Report Type: Report from Study
  Country: KR (occurrence: KR)
  Receive Date: 20210416
  Receipt Date: 20210514
  Transmission Date: 20210717
  Serious: Yes (Hospitalization)
  Sender: FDA-Public Use
  Company Number: KR-EISAI MEDICAL RESEARCH-EC-2021-091264

PATIENT
  Age: 66 Year
  Sex: Male
  Weight: 81.75 kg

DRUGS (13)
  1. TARGIN [Concomitant]
     Active Substance: NALOXONE HYDROCHLORIDE\OXYCODONE HYDROCHLORIDE
     Dates: start: 20210124, end: 20210409
  2. ACETAMINOPHEN. [Concomitant]
     Active Substance: ACETAMINOPHEN
     Dates: start: 20210407, end: 20210407
  3. BELZUTIFAN. [Suspect]
     Active Substance: BELZUTIFAN
     Indication: RENAL CELL CARCINOMA
     Route: 048
     Dates: start: 20210325, end: 20210404
  4. FENTANYL. [Concomitant]
     Active Substance: FENTANYL
     Dates: start: 20210124
  5. AMLODIPINE [Concomitant]
     Active Substance: AMLODIPINE BESYLATE
     Dates: start: 202101
  6. LACTULOSE. [Concomitant]
     Active Substance: LACTULOSE
     Dates: start: 20210408, end: 20210408
  7. DESMOPRESSIN [Concomitant]
     Active Substance: DESMOPRESSIN
     Dates: start: 2018, end: 20210429
  8. FINASTERIDE. [Concomitant]
     Active Substance: FINASTERIDE
     Dates: start: 2018
  9. NEBIVOLOL. [Concomitant]
     Active Substance: NEBIVOLOL
     Dates: start: 202101
  10. LENVATINIB [Suspect]
     Active Substance: LENVATINIB
     Indication: RENAL CELL CARCINOMA
     Route: 048
     Dates: start: 20210325, end: 20210404
  11. TAMSULOSIN HYDROCHLORIDE. [Concomitant]
     Active Substance: TAMSULOSIN HYDROCHLORIDE
     Dates: start: 2018, end: 20210429
  12. PENTOSAN POLYSULFATE [Concomitant]
     Active Substance: PENTOSAN POLYSULFATE
     Dates: start: 2018, end: 20210429
  13. MORPHINE HYDROCHLORIDE [Concomitant]
     Active Substance: MORPHINE HYDROCHLORIDE
     Dates: start: 20210408, end: 20210408

REACTIONS (1)
  - Pneumonitis [Not Recovered/Not Resolved]

NARRATIVE: CASE EVENT DATE: 20210408
